FAERS Safety Report 26155042 (Version 1)
Quarter: 2025Q4

REPORT INFORMATION
  Report Type: Spontaneous
  Country: US (occurrence: US)
  Receive Date: 20251215
  Receipt Date: 20251215
  Transmission Date: 20260118
  Serious: Yes (Other)
  Sender: EXTROVIS AG
  Company Number: US-EXTROVIS-20250145

PATIENT
  Age: 83 Year
  Sex: Male

DRUGS (8)
  1. FLUOROURACIL [Suspect]
     Active Substance: FLUOROURACIL
     Indication: Actinic keratosis
     Dosage: APPLIED TWICE DAILY FOR TWO WEEKS
  2. ATORVASTATIN [Concomitant]
     Active Substance: ATORVASTATIN
  3. CLOPIDOGREL [Concomitant]
     Active Substance: CLOPIDOGREL BISULFATE
  4. FINASTERIDE [Concomitant]
     Active Substance: FINASTERIDE
  5. LATANOPROST [Concomitant]
     Active Substance: LATANOPROST
  6. METOPROLOL [Concomitant]
     Active Substance: METOPROLOL
  7. TAMSULOSIN [Concomitant]
     Active Substance: TAMSULOSIN
  8. TIMOLOL [Concomitant]
     Active Substance: TIMOLOL

REACTIONS (1)
  - Supraorbital neuralgia [Not Recovered/Not Resolved]
